FAERS Safety Report 8036604-7 (Version None)
Quarter: 2012Q1

REPORT INFORMATION
  Report Type: 
  Country: None (occurrence: None)
  Receive Date: 20120111
  Receipt Date: 20120105
  Transmission Date: 20120608
  Serious: Yes (Life-Threatening, Hospitalization)
  Sender: FDA-Public Use
  Company Number: DK-SANOFI-AVENTIS-2011SA083021

PATIENT
  Age: 67 Year
  Sex: Male
  Weight: 90 kg

DRUGS (13)
  1. CABAZITAXEL [Suspect]
     Route: 042
     Dates: start: 20111130, end: 20111130
  2. RANITIDINE [Concomitant]
     Indication: PROPHYLAXIS
     Route: 042
     Dates: start: 20111130, end: 20111130
  3. GABAPENTIN [Concomitant]
     Route: 048
  4. ENALAPRIL MALEATE [Concomitant]
     Route: 048
  5. PREDNISOLONE [Suspect]
     Route: 048
     Dates: start: 20111130, end: 20111216
  6. CLEMASTINE FUMARATE [Concomitant]
     Route: 042
     Dates: start: 20111130, end: 20111130
  7. MOVIPREP [Concomitant]
     Indication: PROPHYLAXIS
     Route: 048
  8. IBUPROFEN [Concomitant]
     Route: 048
  9. ACETAMINOPHEN [Concomitant]
     Route: 048
  10. LANSOPRAZOLE [Concomitant]
     Route: 048
  11. DEXAMETHASONE TAB [Concomitant]
     Indication: PROPHYLAXIS
     Route: 042
     Dates: start: 20111130, end: 20111130
  12. MORPHINE [Concomitant]
     Route: 048
  13. ZOMETA [Concomitant]
     Indication: PROPHYLAXIS
     Route: 042

REACTIONS (2)
  - DISSEMINATED INTRAVASCULAR COAGULATION [None]
  - GASTRITIS [None]
